FAERS Safety Report 6634730-8 (Version None)
Quarter: 2010Q1

REPORT INFORMATION
  Report Type: 
  Country: None (occurrence: None)
  Receive Date: 20100315
  Receipt Date: 20100212
  Transmission Date: 20100710
  Serious: No
  Sender: FDA-Public Use
  Company Number: US-BAYER-200944012NA

PATIENT
  Age: 32 Year
  Sex: Female
  Weight: 57 kg

DRUGS (1)
  1. ULTRAVIST 370 [Suspect]
     Indication: ANGIOGRAM
     Dosage: TOTAL DAILY DOSE: 140 ML  UNIT DOSE: 150 ML
     Route: 042
     Dates: start: 20091223, end: 20091223

REACTIONS (3)
  - COUGH [None]
  - SNEEZING [None]
  - URTICARIA [None]
